FAERS Safety Report 7218387-3 (Version None)
Quarter: 2011Q1

REPORT INFORMATION
  Report Type: 
  Country: None (occurrence: None)
  Receive Date: 20110110
  Receipt Date: 20101221
  Transmission Date: 20110831
  Serious: No
  Sender: FDA-Public Use
  Company Number: US-B.I. PHARMACEUTICALS,INC./RIDGEFIELD-2010-BP-15202BP

PATIENT
  Age: 78 Year
  Sex: Female

DRUGS (7)
  1. HYDROCHLOROTHIAZIDE [Concomitant]
     Indication: HYPERTENSION
     Dosage: 25 MG
     Route: 048
  2. PRADAXA [Suspect]
     Indication: ATRIAL FIBRILLATION
     Dosage: 300 MG
     Route: 048
     Dates: start: 20101216
  3. AMIODARONE [Concomitant]
     Dosage: 200 MG
     Route: 048
  4. AMIODARONE [Concomitant]
     Indication: HYPERTENSION
     Dosage: 25 MG
     Route: 048
  5. CALCIUM [Concomitant]
     Indication: ROUTINE HEALTH MAINTENANCE
     Dosage: 600 MG
     Route: 048
  6. CALCIUM [Concomitant]
     Indication: MINERAL SUPPLEMENTATION
  7. BENAZEPRIL [Concomitant]
     Indication: HYPERTENSION
     Dosage: 40 MG
     Route: 048

REACTIONS (3)
  - INSOMNIA [None]
  - HEADACHE [None]
  - HYPERTENSION [None]
